FAERS Safety Report 18805920 (Version 2)
Quarter: 2021Q1

REPORT INFORMATION
  Report Type: Other
  Country: CN (occurrence: CN)
  Receive Date: 20210129
  Receipt Date: 20210211
  Transmission Date: 20210419
  Serious: Yes (Other)
  Sender: FDA-Public Use
  Company Number: CN-ROCHE-2758323

PATIENT

DRUGS (2)
  1. ALTEPLASE. [Suspect]
     Active Substance: ALTEPLASE
     Dosage: 10% ADMINISTERED AS A BOLUS FOLLOWED BY 1?HOUR INFUSION OF THE REMAINING DOSE.
     Route: 042
  2. ALTEPLASE. [Suspect]
     Active Substance: ALTEPLASE
     Indication: ISCHAEMIC STROKE
     Dosage: 10% ADMINISTERED AS A BOLUS FOLLOWED BY 1?HOUR INFUSION OF THE REMAINING DOSE.
     Route: 040

REACTIONS (1)
  - Artery dissection [Unknown]
